FAERS Safety Report 22187840 (Version 1)
Quarter: 2023Q2

REPORT INFORMATION
  Report Type: Other
  Country: US (occurrence: US)
  Receive Date: 20230408
  Receipt Date: 20230408
  Transmission Date: 20230721
  Serious: Yes (Death)
  Sender: FDA-Public Use
  Company Number: US-ALVOGEN-2023090025

PATIENT
  Age: 68 Year
  Sex: Female

DRUGS (7)
  1. LISINOPRIL [Suspect]
     Active Substance: LISINOPRIL
     Indication: Completed suicide
     Route: 048
  2. ACETAMINOPHEN [Suspect]
     Active Substance: ACETAMINOPHEN
     Indication: Completed suicide
     Route: 048
  3. CARVEDILOL [Suspect]
     Active Substance: CARVEDILOL
     Indication: Completed suicide
     Route: 048
  4. CLOPIDOGREL [Suspect]
     Active Substance: CLOPIDOGREL BISULFATE
     Indication: Completed suicide
     Route: 048
  5. DILTIAZEM [Suspect]
     Active Substance: DILTIAZEM
     Indication: Completed suicide
     Route: 048
  6. APIXABAN [Suspect]
     Active Substance: APIXABAN
     Indication: Completed suicide
     Route: 048
  7. ATORVASTATIN [Suspect]
     Active Substance: ATORVASTATIN
     Indication: Completed suicide
     Route: 048

REACTIONS (1)
  - Completed suicide [Fatal]
